FAERS Safety Report 8927600 (Version 2)
Quarter: 2012Q4

REPORT INFORMATION
  Report Type: 
  Country: IN (occurrence: IN)
  Receive Date: 20121127
  Receipt Date: 20121205
  Transmission Date: 20130627
  Serious: Yes (Hospitalization)
  Sender: FDA-Public Use
  Company Number: PHHY2012IN107440

PATIENT
  Age: 73 Year
  Sex: Female

DRUGS (27)
  1. ACLASTA [Suspect]
     Indication: OSTEOPOROSIS
     Dosage: UNK
     Route: 042
     Dates: start: 20120929
  2. G-CALCIUM LACTATE [Concomitant]
  3. FOSAVANCE [Concomitant]
  4. MIACALCIC [Concomitant]
  5. ARACHITOL [Concomitant]
  6. PENOVER [Concomitant]
  7. REZ D [Concomitant]
  8. MOOV-ULTRA [Concomitant]
     Dosage: 80 g, UNK
  9. EVION [Concomitant]
  10. GRD POWDER [Concomitant]
  11. RESTYL [Concomitant]
  12. KETAMINE [Concomitant]
  13. PROPOFOL [Concomitant]
  14. ACLIOC [Concomitant]
  15. DUPHALAC [Concomitant]
  16. LIVOGEN [Concomitant]
  17. RINIFOL [Concomitant]
  18. AXOGARD [Concomitant]
  19. ILOX [Concomitant]
  20. ANACONE [Concomitant]
  21. TERMIC [Concomitant]
  22. RELFUZ [Concomitant]
  23. EFECTAN [Concomitant]
  24. HYDROCAZINE [Concomitant]
  25. DEXUL [Concomitant]
  26. DEXTOMID [Concomitant]
  27. CYCLOHAPRUN [Concomitant]

REACTIONS (19)
  - Fall [Unknown]
  - Humerus fracture [Unknown]
  - Pain [Unknown]
  - Tenderness [Unknown]
  - Joint crepitation [Unknown]
  - Synovial disorder [Unknown]
  - Musculoskeletal pain [Unknown]
  - Fracture displacement [Unknown]
  - Joint injury [Unknown]
  - Spinal compression fracture [Unknown]
  - Exostosis [Unknown]
  - Kyphosis [Unknown]
  - Dysstasia [Unknown]
  - Back injury [Unknown]
  - Gait disturbance [Unknown]
  - Vertebral wedging [Unknown]
  - Spondyloarthropathy [Unknown]
  - Intervertebral disc disorder [Unknown]
  - Knee deformity [Unknown]
